FAERS Safety Report 5292271-7 (Version None)
Quarter: 2007Q2

REPORT INFORMATION
  Report Type: 
  Country: None (occurrence: None)
  Receive Date: 20070410
  Receipt Date: 20070327
  Transmission Date: 20071010
  Serious: Yes (Life-Threatening, Hospitalization)
  Sender: FDA-Public Use
  Company Number: AU-SANOFI-SYNTHELABO-A01200702528

PATIENT
  Sex: Male

DRUGS (5)
  1. DEXAMETHASONE [Concomitant]
  2. TROPISETRON [Concomitant]
  3. LEUCOVORIN CALCIUM [Concomitant]
     Route: 042
     Dates: start: 20070306, end: 20070306
  4. ASPIRIN [Concomitant]
     Dosage: 100 MG
  5. ELOXATIN [Suspect]
     Indication: COLON CANCER METASTATIC
     Route: 042
     Dates: start: 20070306, end: 20070306

REACTIONS (7)
  - ARTERIOSPASM CORONARY [None]
  - ELECTROCARDIOGRAM CHANGE [None]
  - HYPERTENSION [None]
  - LOSS OF CONSCIOUSNESS [None]
  - MYOCARDIAL ISCHAEMIA [None]
  - RASH [None]
  - TREMOR [None]
